FAERS Safety Report 7953175-1 (Version None)
Quarter: 2011Q4

REPORT INFORMATION
  Report Type: 
  Country: None (occurrence: None)
  Receive Date: 20111201
  Receipt Date: 20111129
  Transmission Date: 20120403
  Serious: Yes (Other)
  Sender: FDA-Public Use
  Company Number: DE-ROCHE-1015711

PATIENT
  Age: 72 Year
  Sex: Male
  Weight: 89 kg

DRUGS (7)
  1. ONDANSETRON [Concomitant]
     Indication: PROPHYLAXIS OF NAUSEA AND VOMITING
     Route: 042
     Dates: start: 20111102
  2. DEXAMETHASONE [Concomitant]
     Indication: PREMEDICATION
     Route: 042
     Dates: start: 20111102
  3. ACETAMINOPHEN [Concomitant]
     Indication: PREMEDICATION
     Dates: start: 20111102
  4. METOCLOPRAMIDE [Concomitant]
     Indication: PROPHYLAXIS OF NAUSEA AND VOMITING
  5. COTRIM DS [Concomitant]
  6. CLEMASTINE FUMARATE [Concomitant]
     Indication: PREMEDICATION
     Dates: start: 20111102
  7. MABTHERA [Suspect]
     Indication: MANTLE CELL LYMPHOMA
     Route: 042
     Dates: start: 20111102

REACTIONS (2)
  - HAEMATURIA [None]
  - CYSTITIS HAEMORRHAGIC [None]
